FAERS Safety Report 9874351 (Version 2)
Quarter: 2014Q1

REPORT INFORMATION
  Report Type: Other
  Country: US (occurrence: US)
  Receive Date: 20140206
  Receipt Date: 20140206
  Transmission Date: 20141002
  Serious: No
  Sender: FDA-Public Use
  Company Number: US-ACORDA-ACO_33815_2013

PATIENT
  Age: 78 Year
  Sex: Female

DRUGS (5)
  1. AMPYRA [Suspect]
     Indication: MULTIPLE SCLEROSIS
     Dosage: 10 MG, BID
     Route: 048
     Dates: start: 201212, end: 201212
  2. TEGRETOL [Concomitant]
     Indication: PRODUCT USED FOR UNKNOWN INDICATION
     Dosage: UNK
  3. FUROSEMIDE [Concomitant]
     Indication: PRODUCT USED FOR UNKNOWN INDICATION
     Dosage: UNK
  4. LISINOPRIL [Concomitant]
     Indication: PRODUCT USED FOR UNKNOWN INDICATION
     Dosage: UNK
  5. OXYBUTYNIN CHLORIDE [Concomitant]
     Indication: PRODUCT USED FOR UNKNOWN INDICATION
     Dosage: UNK

REACTIONS (2)
  - Gait disturbance [Recovered/Resolved]
  - Dizziness [Recovered/Resolved]
